FAERS Safety Report 7544875-6 (Version None)
Quarter: 2011Q2

REPORT INFORMATION
  Report Type: 
  Country: None (occurrence: None)
  Receive Date: 20110614
  Receipt Date: 20110104
  Transmission Date: 20111010
  Serious: Yes (Hospitalization)
  Sender: FDA-Public Use
  Company Number: US-BAYER-200942933NA

PATIENT
  Age: 31 Year
  Sex: Female
  Weight: 64 kg

DRUGS (16)
  1. DARVOCET [Concomitant]
  2. VICODIN [Concomitant]
  3. SINGULAIR [Concomitant]
  4. LORTAB [Concomitant]
  5. YAZ [Suspect]
     Indication: PREMENSTRUAL SYNDROME
     Route: 048
     Dates: start: 20070817, end: 20080423
  6. COUMADIN [Concomitant]
     Route: 048
     Dates: start: 20080401
  7. ADIPEX [Concomitant]
     Indication: WEIGHT DECREASED
  8. DECADRON [Concomitant]
     Route: 030
  9. MOTRIN [Concomitant]
     Dosage: UNK UNK, PRN
  10. AMBIEN [Concomitant]
     Route: 048
     Dates: end: 20080423
  11. MUCINEX [Concomitant]
  12. ADVIL LIQUI-GELS [Concomitant]
     Dosage: UNK UNK, PRN
  13. XOPENEX [Concomitant]
  14. ASMANEX TWISTHALER [Concomitant]
  15. ADDERALL 10 [Concomitant]
     Route: 048
  16. ALBUTEROL SULFATE AUTOHALER [Concomitant]

REACTIONS (8)
  - WHEEZING [None]
  - CHEST PAIN [None]
  - PULMONARY EMBOLISM [None]
  - DEEP VEIN THROMBOSIS [None]
  - DYSPNOEA [None]
  - HYPOXIA [None]
  - INJURY [None]
  - TACHYCARDIA [None]
